FAERS Safety Report 11054107 (Version 1)
Quarter: 2015Q2

REPORT INFORMATION
  Report Type: Spontaneous
  Country: US (occurrence: US)
  Receive Date: 20150422
  Receipt Date: 20150422
  Transmission Date: 20150821
  Serious: No
  Sender: FDA-Public Use
  Company Number: US-TEVA-521322USA

PATIENT
  Sex: Male

DRUGS (2)
  1. LOSARTAN [Suspect]
     Active Substance: LOSARTAN
     Indication: BLOOD PRESSURE ABNORMAL
     Dosage: FREQUENCY NOT PROVIDED
  2. LOSARTAN [Suspect]
     Active Substance: LOSARTAN
     Dosage: FREQUENCY NOT PROVIDED

REACTIONS (2)
  - Blood pressure decreased [Unknown]
  - Blood pressure increased [Unknown]
